FAERS Safety Report 6479790-2 (Version None)
Quarter: 2009Q4

REPORT INFORMATION
  Report Type: 
  Country: None (occurrence: None)
  Receive Date: 20091208
  Receipt Date: 20091204
  Transmission Date: 20100525
  Serious: Yes (Death)
  Sender: FDA-Public Use
  Company Number: PHHY2009BR53445

PATIENT
  Sex: Female

DRUGS (3)
  1. DIOVAN [Suspect]
  2. DIOVAN AMLO FIX [Suspect]
  3. DIOVAN HCT [Suspect]

REACTIONS (1)
  - DEATH [None]
